FAERS Safety Report 6382604-2 (Version None)
Quarter: 2009Q3

REPORT INFORMATION
  Report Type: 
  Country: None (occurrence: None)
  Receive Date: 20090930
  Receipt Date: 20090928
  Transmission Date: 20100115
  Serious: Yes (Other)
  Sender: FDA-Public Use
  Company Number: B0595619A

PATIENT
  Sex: Female

DRUGS (1)
  1. LANOXIN [Suspect]
     Indication: DRUG USE FOR UNKNOWN INDICATION
     Dosage: .25MG PER DAY
     Route: 065

REACTIONS (1)
  - CONVULSION [None]
